FAERS Safety Report 5578253-6 (Version None)
Quarter: 2007Q4

REPORT INFORMATION
  Report Type: 
  Country: None (occurrence: None)
  Receive Date: 20071227
  Receipt Date: 20071030
  Transmission Date: 20080405
  Serious: No
  Sender: FDA-Public Use
  Company Number: 2007S1010962

PATIENT
  Age: 60 Year
  Sex: Male

DRUGS (8)
  1. ZOLPIDEM [Suspect]
     Indication: DRUG USE FOR UNKNOWN INDICATION
     Dosage: 10 MG; DAILY
  2. CARVEDILOL [Concomitant]
  3. CITALOPRAM HYDROBROMIDE [Concomitant]
  4. DIGOXIN [Concomitant]
  5. FUROSEMIDE [Concomitant]
  6. PERINDOPRIL ERBUMINE [Concomitant]
  7. WARFARIN SODIUM [Concomitant]
  8. SIMVASTATIN [Concomitant]

REACTIONS (1)
  - LIBIDO DECREASED [None]
